FAERS Safety Report 6695987-0 (Version None)
Quarter: 2010Q2

REPORT INFORMATION
  Report Type: 
  Country: None (occurrence: None)
  Receive Date: 20100423
  Receipt Date: 20100423
  Transmission Date: 20101027
  Serious: No
  Sender: FDA-Public Use
  Company Number: None

PATIENT
  Sex: Female
  Weight: 107 kg

DRUGS (1)
  1. MIRTAZAPINE [Suspect]
     Indication: DEPRESSION
     Dosage: 15MG DAILY PO
     Route: 048
     Dates: start: 20100124, end: 20100127

REACTIONS (2)
  - CONFUSIONAL STATE [None]
  - HALLUCINATION [None]
